FAERS Safety Report 24976226 (Version 1)
Quarter: 2025Q1

REPORT INFORMATION
  Report Type: Report from Study
  Country: DE (occurrence: DE)
  Receive Date: 20250217
  Receipt Date: 20250217
  Transmission Date: 20250409
  Serious: Yes (Death)
  Sender: TEVA
  Company Number: DE-TEVA-VS-3298950

PATIENT

DRUGS (2)
  1. CLOZAPINE [Suspect]
     Active Substance: CLOZAPINE
     Indication: Antipsychotic therapy
     Route: 065
  2. PIRENZEPINE [Suspect]
     Active Substance: PIRENZEPINE
     Indication: Antipsychotic therapy
     Route: 065

REACTIONS (1)
  - Ileus [Fatal]
